FAERS Safety Report 5959431-0 (Version None)
Quarter: 2008Q4

REPORT INFORMATION
  Report Type: 
  Country: None (occurrence: None)
  Receive Date: 20081120
  Receipt Date: 20081006
  Transmission Date: 20090506
  Serious: No
  Sender: FDA-Public Use
  Company Number: A0750614A

PATIENT
  Sex: Female

DRUGS (2)
  1. VERAMYST [Suspect]
     Indication: DRUG USE FOR UNKNOWN INDICATION
     Route: 045
     Dates: start: 20081002, end: 20081003
  2. UNKNOWN [Concomitant]

REACTIONS (1)
  - NASAL CONGESTION [None]
